FAERS Safety Report 4387595-1 (Version None)
Quarter: 2004Q2

REPORT INFORMATION
  Report Type: 
  Country: None (occurrence: None)
  Receive Date: 20040630
  Receipt Date: 20040517
  Transmission Date: 20050107
  Serious: No
  Sender: FDA-Public Use
  Company Number: US-GLAXOSMITHKLINE-A0511085A

PATIENT
  Sex: Female

DRUGS (2)
  1. ADVAIR HFA [Suspect]
     Indication: ILL-DEFINED DISORDER
     Dosage: 1PUFF PER DAY
     Route: 055
     Dates: start: 20020101
  2. ASPIRIN [Concomitant]

REACTIONS (1)
  - TREMOR [None]
